FAERS Safety Report 12316027 (Version 1)
Quarter: 2016Q2

REPORT INFORMATION
  Report Type: Spontaneous
  Country: US (occurrence: US)
  Receive Date: 20160428
  Receipt Date: 20160428
  Transmission Date: 20160815
  Serious: Yes (Death, Other)
  Sender: FDA-Public Use
  Company Number: US-TAKEDA-TPA2012A04196

PATIENT

DRUGS (2)
  1. ACTOS [Suspect]
     Active Substance: PIOGLITAZONE HYDROCHLORIDE
     Indication: TYPE 2 DIABETES MELLITUS
     Dosage: UNK
     Route: 048
     Dates: start: 200601, end: 200708
  2. DIABETA [Concomitant]
     Active Substance: GLYBURIDE
     Dosage: 5 MG, UNK
     Dates: start: 2006, end: 2009

REACTIONS (3)
  - Death [Fatal]
  - Bladder transitional cell carcinoma [Unknown]
  - Cystitis [Unknown]

NARRATIVE: CASE EVENT DATE: 200902
